FAERS Safety Report 8834117 (Version 1)
Quarter: 2012Q4

REPORT INFORMATION
  Report Type: Spontaneous
  Country: US (occurrence: None)
  Receive Date: 20121011
  Receipt Date: 20121011
  Transmission Date: 20130627
  Serious: Yes (Hospitalization, Other)
  Sender: FDA-Public Use
  Company Number: None

PATIENT
  Age: 26 Year
  Sex: Male
  Weight: 80.74 kg

DRUGS (1)
  1. DEXAMETHASONE [Suspect]
     Indication: FLU LIKE SYMPTOMS
     Dates: start: 20120328, end: 20120328

REACTIONS (2)
  - Product quality issue [None]
  - Meningitis [None]
